FAERS Safety Report 15658215 (Version 2)
Quarter: 2019Q3

REPORT INFORMATION
  Report Type: Spontaneous
  Country: GB (occurrence: GB)
  Receive Date: 20181126
  Receipt Date: 20190807
  Transmission Date: 20191004
  Serious: No
  Sender: FDA-Public Use
  Company Number: GB-JNJFOC-20181131512

PATIENT
  Age: 71 Year
  Sex: Female

DRUGS (1)
  1. SIMPONI [Suspect]
     Active Substance: GOLIMUMAB
     Indication: PRODUCT USED FOR UNKNOWN INDICATION
     Route: 058

REACTIONS (2)
  - Arthralgia [Not Recovered/Not Resolved]
  - Product dose omission [Unknown]

NARRATIVE: CASE EVENT DATE: 2018
